FAERS Safety Report 5224580-1 (Version None)
Quarter: 2007Q1

REPORT INFORMATION
  Report Type: 
  Country: None (occurrence: None)
  Receive Date: 20070126
  Receipt Date: 20060412
  Transmission Date: 20070707
  Serious: Yes (Death)
  Sender: FDA-Public Use
  Company Number: 20073454

PATIENT
  Sex: Male

DRUGS (1)
  1. LIORESAL [Suspect]
     Indication: MUSCLE SPASMS
     Dosage: MCG, DAILY, INTRATHECAL
     Route: 037

REACTIONS (3)
  - LUNG DISORDER [None]
  - PNEUMONIA [None]
  - RESPIRATORY FAILURE [None]
